FAERS Safety Report 7902589-4 (Version None)
Quarter: 2011Q4

REPORT INFORMATION
  Report Type: 
  Country: None (occurrence: None)
  Receive Date: 20111108
  Receipt Date: 20111024
  Transmission Date: 20120403
  Serious: Yes (Death, Hospitalization)
  Sender: FDA-Public Use
  Company Number: GB-WATSON-2011-18131

PATIENT
  Age: 27 Year
  Sex: Female

DRUGS (4)
  1. FERROUS SULFATE TAB [Suspect]
     Indication: INTENTIONAL OVERDOSE
     Dosage: 86 TABS EQUIVALENT TO 103MG/KG ELEMENTAL IRON
     Route: 048
  2. CO-DYDRAMOL [Suspect]
     Indication: INTENTIONAL OVERDOSE
     Dosage: 16 TABS (8G PARACETAMOL, 148MG/KG)
     Route: 048
  3. DICLOFENAC SODIUM [Suspect]
     Indication: INTENTIONAL OVERDOSE
     Dosage: 2800 MG, SINGLE
     Route: 048
  4. IBUPROFEN [Suspect]
     Indication: INTENTIONAL OVERDOSE
     Dosage: 7000 MG, SINGLE
     Route: 048

REACTIONS (14)
  - VOMITING [None]
  - SINUS TACHYCARDIA [None]
  - MULTI-ORGAN FAILURE [None]
  - METABOLIC ACIDOSIS [None]
  - PLATELET COUNT DECREASED [None]
  - COAGULOPATHY [None]
  - ANAEMIA [None]
  - SHOCK [None]
  - ACUTE HEPATIC FAILURE [None]
  - INTENTIONAL OVERDOSE [None]
  - HAEMATEMESIS [None]
  - NAUSEA [None]
  - ELECTROLYTE IMBALANCE [None]
  - BLOOD CREATININE INCREASED [None]
